FAERS Safety Report 24912870 (Version 1)
Quarter: 2025Q1

REPORT INFORMATION
  Report Type: Spontaneous
  Country: US (occurrence: US)
  Receive Date: 20250201
  Receipt Date: 20250201
  Transmission Date: 20250409
  Serious: No
  Sender: GLENMARK
  Company Number: US-GLENMARK PHARMACEUTICALS-2025GMK096860

PATIENT

DRUGS (1)
  1. RYALTRIS [Suspect]
     Active Substance: MOMETASONE FUROATE MONOHYDRATE\OLOPATADINE HYDROCHLORIDE
     Indication: Product used for unknown indication
     Dosage: 1 DOSAGE FORM, BID, AT A DOSE OF 1 SQUIRT IN EACH NOSTRIL, TWICE DAILY
     Route: 045

REACTIONS (4)
  - Product use issue [Unknown]
  - Product prescribing issue [Unknown]
  - Device issue [Unknown]
  - Suspected product tampering [Unknown]
